FAERS Safety Report 15221641 (Version 1)
Quarter: 2018Q3

REPORT INFORMATION
  Report Type: Spontaneous
  Country: US (occurrence: US)
  Receive Date: 20180705
  Receipt Date: 20180705
  Transmission Date: 20181010
  Serious: Yes (Other)
  Sender: FDA-Public Use
  Company Number: None

PATIENT
  Age: 9 Year
  Sex: Female
  Weight: 24.49 kg

DRUGS (3)
  1. ZANTAC [Concomitant]
     Active Substance: RANITIDINE HYDROCHLORIDE
  2. VELTIN [Suspect]
     Active Substance: CLINDAMYCIN PHOSPHATE\TRETINOIN
     Indication: MOLLUSCUM CONTAGIOSUM
     Dosage: ?          OTHER ROUTE:SKIN?
     Route: 061
     Dates: start: 20180527, end: 20180527
  3. ZYRTEC OTC [Concomitant]

REACTIONS (10)
  - Unresponsive to stimuli [None]
  - Dysphemia [None]
  - Muscle rigidity [None]
  - Feeling abnormal [None]
  - Pallor [None]
  - Confusional state [None]
  - Speech disorder [None]
  - Seizure [None]
  - Fall [None]
  - Staring [None]

NARRATIVE: CASE EVENT DATE: 20180527
